FAERS Safety Report 21232121 (Version 1)
Quarter: 2022Q3

REPORT INFORMATION
  Report Type: Spontaneous
  Country: US (occurrence: None)
  Receive Date: 20220818
  Receipt Date: 20220818
  Transmission Date: 20221026
  Serious: Yes (Other)
  Sender: FDA-Public Use
  Company Number: None

PATIENT
  Age: 60 Year
  Sex: 0
  Weight: 60.75 kg

DRUGS (6)
  1. KETOCONAZOLE [Suspect]
     Active Substance: KETOCONAZOLE
     Indication: Dandruff
     Dosage: FREQUENCY : EVERY 4 HOURS;?
     Dates: start: 20220811, end: 20220813
  2. Alive women^s over 50 gummies [Concomitant]
  3. Vitamin D 1000 IU [Concomitant]
  4. b12 2500 [Concomitant]
  5. C 500 [Concomitant]
  6. Biotin 2500 [Concomitant]

REACTIONS (6)
  - Alopecia [None]
  - Erythema [None]
  - Burning sensation [None]
  - Application site reaction [None]
  - Product complaint [None]
  - Rash [None]

NARRATIVE: CASE EVENT DATE: 20220811
